FAERS Safety Report 16669336 (Version 3)
Quarter: 2020Q4

REPORT INFORMATION
  Report Type: Spontaneous
  Country: US (occurrence: US)
  Receive Date: 20190805
  Receipt Date: 20201111
  Transmission Date: 20210113
  Serious: Yes (Hospitalization, Other)
  Sender: FDA-Public Use
  Company Number: US-GLAXOSMITHKLINE-US2019AMR137477

PATIENT
  Age: 70 Year
  Sex: Female
  Weight: 69.84 kg

DRUGS (4)
  1. ALBUTEROL. [Suspect]
     Active Substance: ALBUTEROL
     Indication: PRODUCT USED FOR UNKNOWN INDICATION
     Dosage: UNK
     Route: 065
  2. VENTOLIN [Suspect]
     Active Substance: ALBUTEROL SULFATE
     Indication: CHRONIC OBSTRUCTIVE PULMONARY DISEASE
     Dosage: 1 PUFF(S), QD
  3. TRELEGY ELLIPTA [Suspect]
     Active Substance: FLUTICASONE FUROATE\UMECLIDINIUM BROMIDE\VILANTEROL TRIFENATATE
     Indication: CHRONIC OBSTRUCTIVE PULMONARY DISEASE
     Dosage: 1 PUFF(S), QD
     Route: 065
     Dates: start: 201907
  4. TRELEGY ELLIPTA [Suspect]
     Active Substance: FLUTICASONE FUROATE\UMECLIDINIUM BROMIDE\VILANTEROL TRIFENATATE
     Indication: CHRONIC OBSTRUCTIVE PULMONARY DISEASE
     Dosage: UNK
     Dates: start: 201906

REACTIONS (12)
  - Urinary tract infection [Unknown]
  - Drug ineffective [Unknown]
  - Pneumonia [Recovered/Resolved]
  - Therapeutic response unexpected [Unknown]
  - Oesophageal candidiasis [Unknown]
  - Upper limb fracture [Unknown]
  - Wrong technique in device usage process [Unknown]
  - Legionella infection [Unknown]
  - Illness [Unknown]
  - Fall [Unknown]
  - Substance-induced psychotic disorder [Unknown]
  - Dysphonia [Unknown]

NARRATIVE: CASE EVENT DATE: 201907
